FAERS Safety Report 15350496 (Version 2)
Quarter: 2018Q4

REPORT INFORMATION
  Report Type: Spontaneous
  Country: US (occurrence: US)
  Receive Date: 20180905
  Receipt Date: 20181002
  Transmission Date: 20190204
  Serious: Yes (Other)
  Sender: FDA-Public Use
  Company Number: US-ROCHE-2179553

PATIENT
  Sex: Female
  Weight: 129.39 kg

DRUGS (2)
  1. AVASTIN [Suspect]
     Active Substance: BEVACIZUMAB
     Dosage: RESTARTED
     Route: 042
     Dates: start: 20180913
  2. AVASTIN [Suspect]
     Active Substance: BEVACIZUMAB
     Indication: OVARIAN CANCER
     Route: 042
     Dates: start: 20180707

REACTIONS (4)
  - Hemiparesis [Recovered/Resolved]
  - Headache [Unknown]
  - Transient ischaemic attack [Recovered/Resolved]
  - Visual impairment [Recovered/Resolved]
